FAERS Safety Report 13312931 (Version 1)
Quarter: 2017Q1

REPORT INFORMATION
  Report Type: Spontaneous
  Country: US (occurrence: US)
  Receive Date: 20170309
  Receipt Date: 20170309
  Transmission Date: 20170428
  Serious: No
  Sender: FDA-Public Use
  Company Number: US-ALK ABELLO INC-1064069

PATIENT
  Sex: Female

DRUGS (1)
  1. TEA LEAF [Suspect]
     Active Substance: TEA LEAF
     Route: 060

REACTIONS (2)
  - Adverse reaction [None]
  - Off label use [None]
